FAERS Safety Report 9242890 (Version 2)
Quarter: 2013Q2

REPORT INFORMATION
  Report Type: Spontaneous
  Country: US (occurrence: US)
  Receive Date: 20130419
  Receipt Date: 20130424
  Transmission Date: 20140414
  Serious: Yes (Other)
  Sender: FDA-Public Use
  Company Number: US-BAXTER-2013BAX014278

PATIENT
  Sex: Male
  Weight: 39.92 kg

DRUGS (8)
  1. GAMMAGARD LIQUID [Suspect]
     Indication: IMMUNODEFICIENCY COMMON VARIABLE
     Route: 058
     Dates: start: 20130405, end: 20130405
  2. GAMMAGARD LIQUID [Suspect]
     Route: 058
     Dates: start: 20130405, end: 20130405
  3. GAMMAGARD LIQUID [Suspect]
     Route: 058
     Dates: start: 20130318
  4. SIROLIMUS [Concomitant]
     Indication: PRODUCT USED FOR UNKNOWN INDICATION
     Route: 048
  5. PREDNISONE [Concomitant]
     Indication: PRODUCT USED FOR UNKNOWN INDICATION
     Route: 048
  6. ENALAPRIL [Concomitant]
     Indication: PRODUCT USED FOR UNKNOWN INDICATION
     Route: 048
  7. LIPITOR [Concomitant]
     Indication: PRODUCT USED FOR UNKNOWN INDICATION
     Route: 048
  8. NORDITROPIN [Concomitant]
     Indication: PRODUCT USED FOR UNKNOWN INDICATION
     Route: 058

REACTIONS (1)
  - Blood creatinine increased [Recovering/Resolving]
